FAERS Safety Report 5918294-X (Version None)
Quarter: 2008Q4

REPORT INFORMATION
  Report Type: 
  Country: None (occurrence: None)
  Receive Date: 20081010
  Receipt Date: 20081001
  Transmission Date: 20090506
  Serious: No
  Sender: FDA-Public Use
  Company Number: B0539802A

PATIENT
  Age: 10 Year
  Sex: Female

DRUGS (3)
  1. TOPOTECAN HYDROCHLORIDE (FORMULATION UNKNOWN) (TOPOTECAN) [Suspect]
     Indication: HEPATIC NEOPLASM MALIGNANT
     Dosage: .25 MG/M2
  2. NARCOTIC (FORMULATION UNKNOWN) (NARCOTIC) [Suspect]
     Indication: BACK PAIN
  3. RED BLOOD CELLS [Concomitant]

REACTIONS (5)
  - CHOLELITHIASIS [None]
  - CONSTIPATION [None]
  - DRUG TOXICITY [None]
  - FATIGUE [None]
  - NAUSEA [None]
